FAERS Safety Report 8556189-6 (Version None)
Quarter: 2012Q3

REPORT INFORMATION
  Report Type: 
  Country: None (occurrence: None)
  Receive Date: 20120801
  Receipt Date: 20120724
  Transmission Date: 20120928
  Serious: No
  Sender: FDA-Public Use
  Company Number: US-BAYER-2012-075032

PATIENT
  Age: 79 Year
  Sex: Male
  Weight: 94.331 kg

DRUGS (3)
  1. ALEVE (CAPLET) [Suspect]
     Indication: BACK PAIN
     Dosage: 2, BID
     Route: 048
     Dates: start: 20120721
  2. QUETIAPINE [Concomitant]
  3. BENADRYL [Concomitant]

REACTIONS (1)
  - BACK PAIN [None]
